FAERS Safety Report 7170371-4 (Version None)
Quarter: 2010Q4

REPORT INFORMATION
  Report Type: 
  Country: None (occurrence: None)
  Receive Date: 20101217
  Receipt Date: 20101103
  Transmission Date: 20110411
  Serious: No
  Sender: FDA-Public Use
  Company Number: A0867688A

PATIENT
  Age: 93 Year
  Sex: Female

DRUGS (2)
  1. PROMACTA [Suspect]
     Dosage: 50MG PER DAY
     Route: 048
     Dates: start: 20100529, end: 20100624
  2. ROMIPLOSTIM [Concomitant]
     Indication: IDIOPATHIC THROMBOCYTOPENIC PURPURA
     Dates: start: 20081204

REACTIONS (1)
  - DRUG INEFFECTIVE [None]
